FAERS Safety Report 7389595-6 (Version None)
Quarter: 2011Q2

REPORT INFORMATION
  Report Type: 
  Country: None (occurrence: None)
  Receive Date: 20110401
  Receipt Date: 20110310
  Transmission Date: 20111010
  Serious: No
  Sender: FDA-Public Use
  Company Number: US-B.I. PHARMACEUTICALS,INC./RIDGEFIELD-2011-BP-07682BP

PATIENT
  Sex: Male

DRUGS (7)
  1. RHINOCORT [Concomitant]
     Indication: RHINITIS
  2. PROAIR HFA [Concomitant]
     Indication: ASTHMA
  3. PREDNISONE [Concomitant]
     Indication: PULMONARY CONGESTION
  4. TRAMADOL [Concomitant]
     Indication: BACK PAIN
  5. SPIRIVA [Suspect]
     Indication: CHRONIC OBSTRUCTIVE PULMONARY DISEASE
     Dosage: 18 MCG
     Route: 055
     Dates: start: 20100101
  6. ASTELIN [Concomitant]
     Indication: RHINITIS
  7. HYDROCHLOROTHIAZIDE [Concomitant]
     Indication: HYPERTENSION

REACTIONS (1)
  - ELECTROCARDIOGRAM [None]
